FAERS Safety Report 5960279-1 (Version None)
Quarter: 2008Q4

REPORT INFORMATION
  Report Type: 
  Country: None (occurrence: None)
  Receive Date: 20081110
  Receipt Date: 20080709
  Transmission Date: 20090506
  Serious: No
  Sender: FDA-Public Use
  Company Number: WAES 0805USA00412

PATIENT
  Sex: 0

DRUGS (1)
  1. ZOLINZA [Suspect]
     Indication: MYCOSIS FUNGOIDES
     Dosage: PO
     Route: 048

REACTIONS (2)
  - ANOREXIA [None]
  - WEIGHT DECREASED [None]
